FAERS Safety Report 9224447 (Version 1)
Quarter: 2013Q2

REPORT INFORMATION
  Report Type: Spontaneous
  Country: US (occurrence: None)
  Receive Date: 20130409
  Receipt Date: 20130409
  Transmission Date: 20140414
  Serious: No
  Sender: FDA-Public Use
  Company Number: None

PATIENT
  Age: 52 Year
  Sex: Female

DRUGS (1)
  1. SYMBICORT 160/4.5 MCG ASTRAZENECA FRANCE [Suspect]

REACTIONS (1)
  - Alopecia [None]
